FAERS Safety Report 5660422-8 (Version None)
Quarter: 2008Q1

REPORT INFORMATION
  Report Type: 
  Country: None (occurrence: None)
  Receive Date: 20080311
  Receipt Date: 20071016
  Transmission Date: 20080703
  Serious: No
  Sender: FDA-Public Use
  Company Number: US-BAYER-200713366BCC

PATIENT
  Age: 82 Year
  Sex: Female
  Weight: 81 kg

DRUGS (7)
  1. ALEVE [Suspect]
     Indication: BURSITIS
     Dosage: TOTAL DAILY DOSE: 440 MG  UNIT DOSE: 220 MG
     Route: 048
     Dates: start: 20071004
  2. ALEVE [Suspect]
     Dosage: UNIT DOSE: 220 MG
     Route: 048
     Dates: start: 20071010
  3. DARVOCET [Suspect]
     Indication: DRUG USE FOR UNKNOWN INDICATION
     Dates: start: 20071004, end: 20071010
  4. MULTI-VITAMIN [Concomitant]
  5. CALCIUM WITH D [Concomitant]
  6. ASPIRIN [Concomitant]
  7. GLUCOSAMINE CHONDROITIN [Concomitant]

REACTIONS (1)
  - ABDOMINAL PAIN UPPER [None]
